FAERS Safety Report 16625304 (Version 1)
Quarter: 2019Q3

REPORT INFORMATION
  Report Type: Report from Study
  Country: AT (occurrence: AT)
  Receive Date: 20190724
  Receipt Date: 20190724
  Transmission Date: 20191004
  Serious: Yes (Other)
  Sender: FDA-Public Use
  Company Number: AT-AMREGENT-20191536

PATIENT
  Sex: Male

DRUGS (6)
  1. HUMIRA [Suspect]
     Active Substance: ADALIMUMAB
     Dosage: 40MG/0.4ML (1 IN 14 D)
     Route: 058
     Dates: start: 201808
  2. METHOTREXATE. [Concomitant]
     Active Substance: METHOTREXATE
     Dosage: UNKNOWN
     Route: 065
  3. NOVOLIZER [Concomitant]
     Dosage: UNKNOWN
     Route: 065
  4. BUDESONID [Concomitant]
     Active Substance: BUDESONIDE
     Dosage: UNKNOWN
     Route: 065
  5. FERINJECT [Suspect]
     Active Substance: FERRIC CARBOXYMALTOSE
     Dosage: UNKNOWN
     Route: 040
  6. IRON [Suspect]
     Active Substance: IRON
     Dosage: UNKNOWN
     Route: 065

REACTIONS (13)
  - Nausea [Unknown]
  - Pain in extremity [Unknown]
  - Hypoaesthesia [Unknown]
  - Hypoaesthesia oral [Unknown]
  - Injection site pain [Unknown]
  - Oral herpes [Unknown]
  - Vomiting [Not Recovered/Not Resolved]
  - Tremor [Unknown]
  - Blood iron decreased [Unknown]
  - Chills [Unknown]
  - Cataract [Unknown]
  - Injection site induration [Unknown]
  - Injection site bruising [Unknown]

NARRATIVE: CASE EVENT DATE: 2018
